FAERS Safety Report 6371201-0 (Version None)
Quarter: 2009Q3

REPORT INFORMATION
  Report Type: 
  Country: None (occurrence: None)
  Receive Date: 20090923
  Receipt Date: 20070417
  Transmission Date: 20100115
  Serious: No
  Sender: FDA-Public Use
  Company Number: US-ASTRAZENECA-2006UW27649

PATIENT
  Age: 21573 Day
  Sex: Female
  Weight: 116.6 kg

DRUGS (38)
  1. SEROQUEL [Suspect]
     Indication: DEPRESSION
     Dosage: 100-600 MG
     Route: 048
     Dates: start: 20031201
  2. SEROQUEL [Suspect]
     Dosage: 300 TO 600 MG
     Route: 048
     Dates: start: 20040201, end: 20050201
  3. CLOZARIL [Concomitant]
  4. GEODON [Concomitant]
  5. LOTREL [Concomitant]
  6. SYNTHROID [Concomitant]
  7. PAXIL [Concomitant]
  8. EFFEXOR [Concomitant]
  9. REGLAN [Concomitant]
  10. MORPHINE [Concomitant]
  11. PROTONIX [Concomitant]
  12. TRAZODONE [Concomitant]
  13. LIPITOR [Concomitant]
  14. CARDIZEM [Concomitant]
  15. KLONOPIN [Concomitant]
  16. HYDROCHLOROTHIAZIDE [Concomitant]
  17. ZOCOR [Concomitant]
  18. WELLBUTRIN SR [Concomitant]
  19. DIOVAN [Concomitant]
  20. TEMAZEPAM [Concomitant]
  21. ACETAMINOPHEN [Concomitant]
  22. HYDROCODONE [Concomitant]
  23. TRANDATE [Concomitant]
  24. NOVOLOG [Concomitant]
  25. GLUCOPHAGE [Concomitant]
  26. VASOTEC [Concomitant]
  27. DIAMOX [Concomitant]
  28. HALDOL [Concomitant]
  29. SPIRONOLACTONE [Concomitant]
  30. OXYCODONE [Concomitant]
  31. ACIPHEX [Concomitant]
  32. ZELNORM [Concomitant]
  33. ABILIFY [Concomitant]
  34. PREMARIN [Concomitant]
  35. CLONIDINE [Concomitant]
  36. COVERA-HS [Concomitant]
  37. MELLARIL [Concomitant]
  38. MECLIZINE [Concomitant]

REACTIONS (3)
  - BLOOD CHOLESTEROL INCREASED [None]
  - DIABETES MELLITUS [None]
  - OBESITY [None]
